FAERS Safety Report 10072567 (Version 1)
Quarter: 2014Q2

REPORT INFORMATION
  Report Type: Spontaneous
  Country: US (occurrence: US)
  Receive Date: 20140411
  Receipt Date: 20140411
  Transmission Date: 20141212
  Serious: Yes (Other)
  Sender: FDA-Public Use
  Company Number: US-SA-2014SA042031

PATIENT
  Age: 58 Year
  Sex: Female

DRUGS (6)
  1. LANTUS [Suspect]
     Indication: TYPE 1 DIABETES MELLITUS
     Route: 065
  2. APIDRA SOLOSTAR [Concomitant]
  3. METFORMIN [Concomitant]
  4. GLYBURIDE [Concomitant]
  5. HUMALIN [Concomitant]
  6. LEVEMIR [Concomitant]

REACTIONS (9)
  - Ketoacidosis [Unknown]
  - Hyperhidrosis [Unknown]
  - Insomnia [Unknown]
  - Visual brightness [Unknown]
  - Renal function test abnormal [Unknown]
  - Liver disorder [Unknown]
  - Pancreatic disorder [Unknown]
  - Blood glucose increased [Unknown]
  - Malaise [Unknown]
